FAERS Safety Report 8262381-0 (Version None)
Quarter: 2012Q2

REPORT INFORMATION
  Report Type: 
  Country: None (occurrence: None)
  Receive Date: 20120405
  Receipt Date: 20120321
  Transmission Date: 20120825
  Serious: Yes (Hospitalization, Other)
  Sender: FDA-Public Use
  Company Number: US-ROCHE-CID000000001987453

PATIENT
  Sex: Male

DRUGS (11)
  1. TORSEMIDE [Suspect]
     Route: 048
     Dates: start: 20120102, end: 20120102
  2. SIMVASTATIN [Concomitant]
  3. SPIRONOLACTONE [Suspect]
     Indication: CARDIAC DISORDER
     Route: 048
     Dates: end: 20120102
  4. METOPROLOL SUCCINATE [Concomitant]
  5. TORSEMIDE [Suspect]
     Indication: CARDIAC DISORDER
     Route: 048
     Dates: start: 20120101
  6. IMDUR [Concomitant]
  7. ENALAPRIL [Concomitant]
  8. PANOCOD [Concomitant]
  9. MOLLIPECT [Concomitant]
  10. WARFARIN SODIUM [Suspect]
     Indication: CARDIAC DISORDER
     Dates: end: 20120102
  11. ACETAMINOPHEN [Concomitant]

REACTIONS (2)
  - INTERNATIONAL NORMALISED RATIO INCREASED [None]
  - DEHYDRATION [None]
